FAERS Safety Report 5118566-5 (Version None)
Quarter: 2006Q3

REPORT INFORMATION
  Report Type: 
  Country: None (occurrence: None)
  Receive Date: 20060927
  Receipt Date: 20060926
  Transmission Date: 20061208
  Serious: Yes (Hospitalization)
  Sender: FDA-Public Use
  Company Number: 228181

PATIENT
  Age: 73 Year
  Sex: Male
  Weight: 74 kg

DRUGS (10)
  1. RITUXIMAB [Suspect]
     Indication: CHRONIC LYMPHOCYTIC LEUKAEMIA
     Dosage: 375 MG/M2 TO 500 MG/M2, INTRAVENOUS
     Route: 042
     Dates: start: 20060321, end: 20060712
  2. RITUXIMAB (R [Suspect]
  3. FLUDARABINE PHOSPHATE [Suspect]
     Indication: CHRONIC LYMPHOCYTIC LEUKAEMIA
     Dosage: 25 MG/M2, UNK, INTRAVENOUS
     Route: 042
     Dates: start: 20060322, end: 20060714
  4. CYCLOPHOSPHAMIDE [Suspect]
     Indication: CHRONIC LYMPHOCYTIC LEUKAEMIA
     Dosage: 250 MG/M2, UNK, INTRAVENOUS
     Route: 042
     Dates: start: 20060322, end: 20060714
  5. PROPAFENONE HCL [Concomitant]
  6. ACETYLSALICYLIC ACID N) [Concomitant]
  7. DICLOFENAC SODIUM [Concomitant]
  8. ACYCLOVIR [Concomitant]
  9. TAMSULOSIN          (TAMSULOSIN HYDROCHLORIDE) [Concomitant]
  10. SULFAMETHOXAZOLE + TRIMETHOPRIM [Concomitant]

REACTIONS (1)
  - NEUTROPENIA [None]
